FAERS Safety Report 6961137-6 (Version None)
Quarter: 2010Q3

REPORT INFORMATION
  Report Type: 
  Country: None (occurrence: None)
  Receive Date: 20100901
  Receipt Date: 20100825
  Transmission Date: 20110219
  Serious: Yes (Other)
  Sender: FDA-Public Use
  Company Number: US-ABBOTT-10P-163-0666519-00

PATIENT
  Sex: Male
  Weight: 112.59 kg

DRUGS (11)
  1. HUMIRA [Suspect]
     Indication: ANKYLOSING SPONDYLITIS
     Route: 058
     Dates: start: 20091101
  2. PRAVACHOL [Concomitant]
     Indication: PRODUCT USED FOR UNKNOWN INDICATION
  3. ZETIA [Concomitant]
     Indication: PRODUCT USED FOR UNKNOWN INDICATION
  4. NOVIA [Concomitant]
     Indication: BLOOD TRIGLYCERIDES INCREASED
     Dates: start: 20100801
  5. BIASTOLIC [Concomitant]
     Indication: HYPERTENSION
  6. PRENAVIL [Concomitant]
     Indication: HYPERTENSION
  7. DIGOXIN [Concomitant]
     Indication: CARDIAC DISORDER
  8. JANUVIA [Concomitant]
     Indication: DIABETES MELLITUS
  9. PAXIL [Concomitant]
     Indication: PRODUCT USED FOR UNKNOWN INDICATION
  10. SULFASALAZINE [Concomitant]
     Indication: ARTHRITIS
  11. COUMADIN [Concomitant]
     Indication: PRODUCT USED FOR UNKNOWN INDICATION

REACTIONS (6)
  - BLADDER CANCER [None]
  - CONTUSION [None]
  - HEAD INJURY [None]
  - INTERNATIONAL NORMALISED RATIO DECREASED [None]
  - MASS [None]
  - MENINGIOMA BENIGN [None]
